FAERS Safety Report 15655853 (Version 1)
Quarter: 2018Q4

REPORT INFORMATION
  Report Type: Spontaneous
  Country: US (occurrence: US)
  Receive Date: 20181126
  Receipt Date: 20181126
  Transmission Date: 20190205
  Serious: Yes (Other)
  Sender: FDA-Public Use
  Company Number: US-B.I. PHARMACEUTICALS,INC./RIDGEFIELD-2018-BI-056531

PATIENT
  Age: 76 Year
  Sex: Female

DRUGS (2)
  1. PRADAXA [Suspect]
     Active Substance: DABIGATRAN ETEXILATE MESYLATE
     Indication: DEEP VEIN THROMBOSIS
     Route: 065
  2. DEXTROMETHORPHAN;QUINIDINE [Suspect]
     Active Substance: DEXTROMETHORPHAN HYDROBROMIDE\QUINIDINE SULFATE
     Indication: PRODUCT USED FOR UNKNOWN INDICATION
     Dosage: DOSE-20/10 MG TWICE DAILY
     Route: 065

REACTIONS (5)
  - Acute kidney injury [Unknown]
  - Drug interaction [Unknown]
  - Haemorrhagic anaemia [Not Recovered/Not Resolved]
  - Blood urine present [Unknown]
  - Lower gastrointestinal haemorrhage [Not Recovered/Not Resolved]
